FAERS Safety Report 9765518 (Version 1)
Quarter: 2013Q4

REPORT INFORMATION
  Report Type: Spontaneous
  Country: US (occurrence: US)
  Receive Date: 20131217
  Receipt Date: 20131217
  Transmission Date: 20140711
  Serious: No
  Sender: FDA-Public Use
  Company Number: US-GLAXOSMITHKLINE-A1007838A

PATIENT
  Age: 56 Year
  Sex: Male

DRUGS (10)
  1. VOTRIENT [Suspect]
     Indication: RENAL CELL CARCINOMA
     Dosage: 400MG PER DAY
     Route: 048
     Dates: start: 201206
  2. AMLODIPINE [Concomitant]
  3. PRILOSEC [Concomitant]
  4. TRAMADOL [Concomitant]
  5. LORATADINE [Concomitant]
  6. VITAMIN D [Concomitant]
  7. LEVOTHYROXINE [Concomitant]
  8. METOPROLOL [Concomitant]
  9. HYDROCORTISONE [Concomitant]
  10. FLUDROCORTISONE [Concomitant]

REACTIONS (2)
  - Fatigue [Not Recovered/Not Resolved]
  - Diarrhoea [Unknown]
